FAERS Safety Report 24094198 (Version 1)
Quarter: 2024Q3

REPORT INFORMATION
  Report Type: Spontaneous
  Country: US (occurrence: US)
  Receive Date: 20240716
  Receipt Date: 20240716
  Transmission Date: 20241017
  Serious: No
  Sender: GLAXOSMITHKLINE
  Company Number: US-GSK-US2024084332

PATIENT
  Age: 63 Year
  Sex: Female

DRUGS (2)
  1. JEMPERLI [Suspect]
     Active Substance: DOSTARLIMAB-GXLY
     Indication: Endometrial sarcoma
     Dosage: 500 FOR 6 COURSE OF CHEMO
     Dates: start: 20230809
  2. JEMPERLI [Suspect]
     Active Substance: DOSTARLIMAB-GXLY
     Dosage: 1000 FOR 24 MONTHS EVERY 6 WEEKS

REACTIONS (1)
  - Alopecia [Not Recovered/Not Resolved]

NARRATIVE: CASE EVENT DATE: 20230831
